FAERS Safety Report 8839873 (Version 2)
Quarter: 2012Q4

REPORT INFORMATION
  Report Type: 
  Country: IT (occurrence: IT)
  Receive Date: 20121015
  Receipt Date: 20121106
  Transmission Date: 20130627
  Serious: Yes (Hospitalization, Other)
  Sender: FDA-Public Use
  Company Number: IT-BRISTOL-MYERS SQUIBB COMPANY-17019209

PATIENT
  Age: 81 Year
  Sex: Female

DRUGS (3)
  1. COUMADIN TABS 5 MG [Suspect]
     Indication: ATRIAL FIBRILLATION
     Dosage: 1DF: 1Dose
     Dates: start: 20120101, end: 20120922
  2. METFORMINA [Concomitant]
     Indication: DIABETES MELLITUS
     Route: 048
  3. OLMESARTAN MEDOXOMIL + HCTZ [Concomitant]

REACTIONS (2)
  - Subdural haematoma [Recovering/Resolving]
  - Head injury [Unknown]
